FAERS Safety Report 8239841-1 (Version None)
Quarter: 2012Q1

REPORT INFORMATION
  Report Type: 
  Country: None (occurrence: None)
  Receive Date: 20120328
  Receipt Date: 20120322
  Transmission Date: 20120608
  Serious: Yes (Other)
  Sender: FDA-Public Use
  Company Number: PHHY2012BR025302

PATIENT
  Age: 80 Year
  Sex: Male

DRUGS (2)
  1. FORMOTEROL FUMARATE [Suspect]
     Indication: CHRONIC OBSTRUCTIVE PULMONARY DISEASE
     Dosage: 2 DF, 12/400 MCG
     Dates: start: 20070101
  2. FORMOTEROL FUMARATE [Suspect]
     Indication: CARDIAC FAILURE

REACTIONS (4)
  - COUGH [None]
  - SYNCOPE [None]
  - APNOEA [None]
  - INFLUENZA LIKE ILLNESS [None]
